FAERS Safety Report 5313963-7 (Version None)
Quarter: 2007Q2

REPORT INFORMATION
  Report Type: 
  Country: None (occurrence: None)
  Receive Date: 20070501
  Receipt Date: 20070420
  Transmission Date: 20071010
  Serious: Yes (Hospitalization, Other)
  Sender: FDA-Public Use
  Company Number: US-PFIZER INC-2006093921

PATIENT
  Sex: Female

DRUGS (3)
  1. BEXTRA [Suspect]
     Indication: RHEUMATOID ARTHRITIS
  2. BEXTRA [Suspect]
     Indication: OSTEOARTHRITIS
  3. VIOXX [Suspect]
     Dates: start: 20010202, end: 20021027

REACTIONS (1)
  - CEREBROVASCULAR ACCIDENT [None]
